FAERS Safety Report 5537331-8 (Version None)
Quarter: 2007Q4

REPORT INFORMATION
  Report Type: 
  Country: None (occurrence: None)
  Receive Date: 20071207
  Receipt Date: 20071123
  Transmission Date: 20080405
  Serious: Yes (Other)
  Sender: FDA-Public Use
  Company Number: IN-NOVOPROD-270040

PATIENT
  Age: 55 Year
  Sex: Female

DRUGS (1)
  1. NOVOLOG MIX 70/30 [Suspect]
     Indication: DIABETES MELLITUS
     Dates: start: 20071119, end: 20071122

REACTIONS (4)
  - BLOOD GLUCOSE ABNORMAL [None]
  - DIABETES MELLITUS INADEQUATE CONTROL [None]
  - OEDEMA [None]
  - PRURITUS [None]
